FAERS Safety Report 9074982 (Version 1)
Quarter: 2013Q1

REPORT INFORMATION
  Report Type: Spontaneous
  Country: US (occurrence: US)
  Receive Date: 20130128
  Receipt Date: 20130128
  Transmission Date: 20140127
  Serious: No
  Sender: FDA-Public Use
  Company Number: US-GLAXOSMITHKLINE-A0983031A

PATIENT
  Age: 59 Year
  Sex: Female
  Weight: 55 kg

DRUGS (17)
  1. MEPRON [Suspect]
     Indication: PNEUMOCYSTIS JIROVECII PNEUMONIA
     Dosage: 1500MG PER DAY
     Route: 048
     Dates: start: 20120619
  2. TYLENOL [Concomitant]
  3. CELLCEPT [Concomitant]
  4. WARFARIN [Concomitant]
  5. ASPIRIN [Concomitant]
  6. CARDIZEM [Concomitant]
  7. NEORAL [Concomitant]
  8. PERI-COLACE [Concomitant]
  9. HYDRALAZINE [Concomitant]
  10. MAG-OX [Concomitant]
  11. REGLAN [Concomitant]
  12. NYSTATIN [Concomitant]
  13. PROTONIX [Concomitant]
  14. PREDNISONE [Concomitant]
  15. SEROQUEL [Concomitant]
  16. VALCYTE [Concomitant]
  17. BACTRIM [Concomitant]

REACTIONS (2)
  - Vomiting [Recovered/Resolved]
  - Nausea [Not Recovered/Not Resolved]
